FAERS Safety Report 24234796 (Version 1)
Quarter: 2024Q3

REPORT INFORMATION
  Report Type: Spontaneous
  Country: US (occurrence: None)
  Receive Date: 20240820
  Receipt Date: 20240820
  Transmission Date: 20241017
  Serious: Yes (Death)
  Sender: Public
  Company Number: None

PATIENT
  Age: 73 Year
  Sex: Male

DRUGS (2)
  1. TACROLIMUS [Suspect]
     Active Substance: TACROLIMUS
     Indication: Bone marrow transplant
     Dosage: 1 MG TWICE A DAY ORAL
     Route: 048
     Dates: start: 20230124
  2. sirolimus  0.5mg [Concomitant]
     Dates: start: 20230503, end: 20231211

REACTIONS (1)
  - Death [None]

NARRATIVE: CASE EVENT DATE: 20240819
